FAERS Safety Report 16243253 (Version 1)
Quarter: 2019Q2

REPORT INFORMATION
  Report Type: Spontaneous
  Country: US (occurrence: US)
  Receive Date: 20190426
  Receipt Date: 20190426
  Transmission Date: 20190711
  Serious: Yes (Other)
  Sender: FDA-Public Use
  Company Number: US-PFIZER INC-2019176425

PATIENT
  Age: 3 Year
  Sex: Female

DRUGS (1)
  1. NEURONTIN [Suspect]
     Active Substance: GABAPENTIN
     Indication: NEUROLOGICAL SYMPTOM
     Dosage: ^ AT LEAST 100 MG^, 2X/DAY
     Route: 048

REACTIONS (5)
  - Tooth erosion [Unknown]
  - Product use issue [Unknown]
  - Gingival recession [Unknown]
  - Tooth abscess [Unknown]
  - Tooth fracture [Unknown]
